FAERS Safety Report 23090490 (Version 4)
Quarter: 2023Q4

REPORT INFORMATION
  Report Type: Spontaneous
  Country: US (occurrence: US)
  Receive Date: 20231020
  Receipt Date: 20231220
  Transmission Date: 20240109
  Serious: No
  Sender: FDA-Public Use
  Company Number: US-PFIZER INC-PV202300171686

PATIENT
  Age: 80 Year
  Sex: Female

DRUGS (3)
  1. IBRANCE [Suspect]
     Active Substance: PALBOCICLIB
     Indication: Breast cancer female
     Dosage: 75 MG DAILY, ON DAYS 1-21 OF EACH 28-DAY CYCLE
     Route: 048
     Dates: start: 20210615
  2. IBRANCE [Suspect]
     Active Substance: PALBOCICLIB
     Dosage: 75 MG DAILY, ON DAYS 1-21 OF EACH 28-DAY CYCLE
     Route: 048
     Dates: start: 20230110
  3. FULVESTRANT [Concomitant]
     Active Substance: FULVESTRANT
     Indication: Breast cancer female
     Dosage: UNK

REACTIONS (1)
  - Hypoacusis [Unknown]
